FAERS Safety Report 5129025-8 (Version None)
Quarter: 2006Q4

REPORT INFORMATION
  Report Type: 
  Country: None (occurrence: None)
  Receive Date: 20061017
  Receipt Date: 20060929
  Transmission Date: 20070319
  Serious: Yes (Life-Threatening, Hospitalization)
  Sender: FDA-Public Use
  Company Number: JP-MERCK-0610USA09845

PATIENT
  Age: 76 Year
  Sex: Female

DRUGS (5)
  1. FOSAMAX [Suspect]
     Indication: OSTEOPOROSIS
     Route: 048
     Dates: start: 20051208, end: 20060928
  2. GASMOTIN [Suspect]
     Route: 048
     Dates: start: 20060112, end: 20060928
  3. PARIET [Suspect]
     Indication: GASTRIC ULCER
     Route: 048
     Dates: start: 20051027, end: 20060928
  4. PARIET [Suspect]
     Indication: REFLUX OESOPHAGITIS
     Route: 048
     Dates: start: 20051027, end: 20060928
  5. AMLODIN [Suspect]
     Indication: HYPERTENSION
     Route: 048
     Dates: start: 20050630, end: 20060928

REACTIONS (1)
  - HEPATITIS ACUTE [None]
